FAERS Safety Report 18217341 (Version 1)
Quarter: 2020Q3

REPORT INFORMATION
  Report Type: Spontaneous
  Country: US (occurrence: US)
  Receive Date: 20200831
  Receipt Date: 20200831
  Transmission Date: 20201103
  Serious: Yes (Hospitalization)
  Sender: FDA-Public Use
  Company Number: None

PATIENT
  Age: 72 Year
  Sex: Male

DRUGS (1)
  1. LEVETIRACETAM (LEVETIRACETAM 750MG TAB) [Suspect]
     Active Substance: LEVETIRACETAM
     Indication: SEIZURE
     Dates: start: 20200703, end: 20200714

REACTIONS (1)
  - Seizure [None]

NARRATIVE: CASE EVENT DATE: 20200714
